FAERS Safety Report 5939921-7 (Version None)
Quarter: 2008Q4

REPORT INFORMATION
  Report Type: 
  Country: None (occurrence: None)
  Receive Date: 20081030
  Receipt Date: 20081030
  Transmission Date: 20090506
  Serious: No
  Sender: FDA-Public Use
  Company Number: None

PATIENT
  Age: 47 Year
  Sex: Male

DRUGS (1)
  1. MEDICATED OIL ANHING [Suspect]
     Dates: start: 20081013

REACTIONS (3)
  - COLD SWEAT [None]
  - LOSS OF CONSCIOUSNESS [None]
  - VOMITING [None]
